FAERS Safety Report 5966446-5 (Version None)
Quarter: 2008Q4

REPORT INFORMATION
  Report Type: 
  Country: None (occurrence: None)
  Receive Date: 20081125
  Receipt Date: 20081001
  Transmission Date: 20090506
  Serious: No
  Sender: FDA-Public Use
  Company Number: US-AMGEN-KDL308839

PATIENT
  Sex: Female
  Weight: 65.8 kg

DRUGS (2)
  1. ENBREL [Suspect]
     Indication: RHEUMATOID ARTHRITIS
     Route: 058
     Dates: start: 20080902, end: 20080912
  2. ARAVA [Concomitant]
     Dates: start: 20070101

REACTIONS (2)
  - RASH PAPULAR [None]
  - RASH PRURITIC [None]
